FAERS Safety Report 6825184-7 (Version None)
Quarter: 2010Q3

REPORT INFORMATION
  Report Type: 
  Country: None (occurrence: None)
  Receive Date: 20100708
  Receipt Date: 20061229
  Transmission Date: 20110219
  Serious: No
  Sender: FDA-Public Use
  Company Number: US-PFIZER INC-2007001398

PATIENT
  Sex: Female
  Weight: 60.33 kg

DRUGS (3)
  1. CHANTIX [Suspect]
     Indication: SMOKING CESSATION THERAPY
     Dates: start: 20060101, end: 20061201
  2. CLARITHROMYCIN [Suspect]
     Indication: COUGH
     Dates: start: 20061227
  3. NORVASC [Concomitant]
     Indication: BLOOD PRESSURE ABNORMAL

REACTIONS (4)
  - COUGH [None]
  - DRUG INEFFECTIVE [None]
  - DYSPHAGIA [None]
  - THROAT IRRITATION [None]
